FAERS Safety Report 4784946-0 (Version None)
Quarter: 2005Q3

REPORT INFORMATION
  Report Type: 
  Country: None (occurrence: None)
  Receive Date: 20050930
  Receipt Date: 20050922
  Transmission Date: 20060218
  Serious: Yes (Other)
  Sender: FDA-Public Use
  Company Number: PHEH2005US10601

PATIENT
  Age: 70 Year
  Sex: Female

DRUGS (1)
  1. ESTRADERM [Suspect]
     Indication: HORMONE REPLACEMENT THERAPY
     Dosage: 0.1MG/DAY
     Route: 062

REACTIONS (3)
  - EYE DISCHARGE [None]
  - GLAUCOMA [None]
  - PAIN IN EXTREMITY [None]
